FAERS Safety Report 7402158-9 (Version None)
Quarter: 2011Q1

REPORT INFORMATION
  Report Type: 
  Country: None (occurrence: None)
  Receive Date: 20110331
  Receipt Date: 20110322
  Transmission Date: 20110831
  Serious: Yes (Other)
  Sender: FDA-Public Use
  Company Number: DSA_45143_2011

PATIENT
  Sex: Female

DRUGS (4)
  1. ELONTRIL (ELONTRIL - BUPROPION HYDROCHLORIDE) (NOT SPECIFIED) [Suspect]
     Indication: MENTAL DISORDER
     Dosage: (300 MG QD ORAL)
     Route: 048
  2. LAMOTRIGINE [Suspect]
     Indication: PRODUCT USED FOR UNKNOWN INDICATION
     Dosage: (200 MG QD)
  3. QUETIAPINE (QUETIAPINE) 400 MG [Suspect]
     Indication: PRODUCT USED FOR UNKNOWN INDICATION
     Dosage: (400 MG QD)
  4. CITALOPRAM (CITALOPRAM) 20 MG [Suspect]
     Indication: PRODUCT USED FOR UNKNOWN INDICATION
     Dosage: (20 MG QD)

REACTIONS (1)
  - DIABETES INSIPIDUS [None]
